FAERS Safety Report 24106701 (Version 3)
Quarter: 2024Q4

REPORT INFORMATION
  Report Type: Spontaneous
  Country: US (occurrence: US)
  Receive Date: 20240717
  Receipt Date: 20241022
  Transmission Date: 20250114
  Serious: No
  Sender: INCYTE
  Company Number: US-INCYTE CORPORATION-2024IN006804

PATIENT

DRUGS (4)
  1. OPZELURA [Suspect]
     Active Substance: RUXOLITINIB PHOSPHATE
     Indication: Vitiligo
     Dosage: UNK, QD
     Route: 065
  2. OPZELURA [Suspect]
     Active Substance: RUXOLITINIB PHOSPHATE
     Dosage: UNK
     Route: 065
  3. OPZELURA [Suspect]
     Active Substance: RUXOLITINIB PHOSPHATE
     Dosage: 5 GRAM, BID
     Route: 061
     Dates: start: 20240408
  4. OPZELURA [Suspect]
     Active Substance: RUXOLITINIB PHOSPHATE
     Dosage: UNK, QD
     Route: 065

REACTIONS (3)
  - Off label use [Unknown]
  - Product availability issue [Unknown]
  - Product dose omission issue [Unknown]
